FAERS Safety Report 6435645-0 (Version None)
Quarter: 2009Q4

REPORT INFORMATION
  Report Type: 
  Country: None (occurrence: None)
  Receive Date: 20091110
  Receipt Date: 20080815
  Transmission Date: 20100525
  Serious: No
  Sender: FDA-Public Use
  Company Number: AECAN200800177

PATIENT
  Age: 60 Year
  Sex: Male

DRUGS (1)
  1. GAMUNEX [Suspect]
     Indication: NECROTISING FASCIITIS
     Dosage: 350 GM;TOTAL;IV
     Route: 042

REACTIONS (2)
  - HAEMOLYSIS [None]
  - RENAL FAILURE ACUTE [None]
